FAERS Safety Report 14230228 (Version 3)
Quarter: 2019Q1

REPORT INFORMATION
  Report Type: Spontaneous
  Country: US (occurrence: US)
  Receive Date: 20171128
  Receipt Date: 20190325
  Transmission Date: 20190417
  Serious: Yes (Other)
  Sender: FDA-Public Use
  Company Number: US-PFIZER INC-2017507040

PATIENT
  Age: 49 Year
  Sex: Male
  Weight: 81 kg

DRUGS (5)
  1. ATROPINE SULFATE/DIPHENOXYLATE HYDROCHLORIDE [Suspect]
     Active Substance: ATROPINE SULFATE\DIPHENOXYLATE HYDROCHLORIDE
     Indication: GASTROINTESTINAL DISORDER
     Dosage: UNK UNK, 4X/DAY
  2. ATROPINE SULFATE/DIPHENOXYLATE HYDROCHLORIDE [Suspect]
     Active Substance: ATROPINE SULFATE\DIPHENOXYLATE HYDROCHLORIDE
     Indication: DIARRHOEA
  3. PREZCOBIX [Concomitant]
     Active Substance: COBICISTAT\DARUNAVIR ETHANOLATE
     Indication: ANTIRETROVIRAL THERAPY
     Dosage: UNK, 1X/DAY (800-150 MG)
     Route: 048
  4. DESCOVY [Concomitant]
     Active Substance: EMTRICITABINE\TENOFOVIR ALAFENAMIDE FUMARATE
     Indication: ANTIRETROVIRAL THERAPY
     Dosage: UNK, 1X/DAY (200//25 MG)
     Route: 048
  5. TIVICAY [Concomitant]
     Active Substance: DOLUTEGRAVIR SODIUM
     Indication: ANTIRETROVIRAL THERAPY
     Dosage: 50 MG, 1X/DAY
     Route: 048

REACTIONS (2)
  - Haematochezia [Recovered/Resolved]
  - Recalled product administered [Unknown]

NARRATIVE: CASE EVENT DATE: 201711
